FAERS Safety Report 10218644 (Version 1)
Quarter: 2014Q2

REPORT INFORMATION
  Report Type: Spontaneous
  Country: US (occurrence: US)
  Receive Date: 20140605
  Receipt Date: 20140605
  Transmission Date: 20141212
  Serious: No
  Sender: FDA-Public Use
  Company Number: US-PFIZER INC-2014152306

PATIENT
  Age: 57 Year
  Sex: Male
  Weight: 88.4 kg

DRUGS (2)
  1. LYRICA [Suspect]
     Indication: FIBROMYALGIA
     Dosage: 25 MG, 2X/DAY
     Route: 048
     Dates: start: 201307, end: 201311
  2. LYRICA [Suspect]
     Dosage: 75 MG, 2X/DAY
     Route: 048
     Dates: start: 201311

REACTIONS (3)
  - Drug ineffective [Unknown]
  - Vision blurred [Not Recovered/Not Resolved]
  - Arthropathy [Unknown]
